FAERS Safety Report 23964954 (Version 2)
Quarter: 2024Q2

REPORT INFORMATION
  Report Type: Spontaneous
  Country: KR (occurrence: KR)
  Receive Date: 20240612
  Receipt Date: 20240619
  Transmission Date: 20240715
  Serious: Yes (Other)
  Sender: FDA-Public Use
  Company Number: KR-ALKEM LABORATORIES LIMITED-KR-ALKEM-2024-12138

PATIENT
  Age: 61 Year
  Sex: Male

DRUGS (11)
  1. CLOPIDOGREL [Interacting]
     Active Substance: CLOPIDOGREL BISULFATE
     Indication: Cerebral infarction
     Dosage: UNK
     Route: 065
  2. DICLOFENAC [Interacting]
     Active Substance: DICLOFENAC
     Indication: Product used for unknown indication
     Dosage: UNK
     Route: 065
  3. ASPIRIN [Interacting]
     Active Substance: ASPIRIN
     Indication: Subdural haematoma
     Dosage: UNK
     Route: 065
  4. ACETAMINOPHEN [Interacting]
     Active Substance: ACETAMINOPHEN
     Indication: Product used for unknown indication
     Dosage: UNK
     Route: 065
  5. REBAMIPIDE [Interacting]
     Active Substance: REBAMIPIDE
     Indication: Product used for unknown indication
     Dosage: UNK
     Route: 065
  6. HERBALS [Interacting]
     Active Substance: HERBALS
     Indication: Product used for unknown indication
     Dosage: UNK
     Route: 065
  7. ATRACTYLODES LANCEA ROOT [Interacting]
     Active Substance: ATRACTYLODES LANCEA ROOT
     Indication: Product used for unknown indication
     Dosage: UNK
     Route: 065
  8. HERBALS [Interacting]
     Active Substance: HERBALS
     Indication: Product used for unknown indication
     Dosage: UNK
     Route: 065
  9. GLYCYRRHIZA GLABRA [Interacting]
     Active Substance: GLYCYRRHIZA GLABRA
     Indication: Product used for unknown indication
     Dosage: UNK
     Route: 065
  10. SCUTELLARIA BAICALENSIS GEORGI [Interacting]
     Active Substance: SCUTELLARIA BAICALENSIS GEORGI
     Indication: Product used for unknown indication
     Dosage: UNK
     Route: 065
  11. HERBALS [Interacting]
     Active Substance: HERBALS
     Indication: Product used for unknown indication
     Dosage: UNK
     Route: 065

REACTIONS (2)
  - Drug interaction [Unknown]
  - Hepatocellular injury [Recovering/Resolving]
